FAERS Safety Report 5349653-4 (Version None)
Quarter: 2007Q2

REPORT INFORMATION
  Report Type: 
  Country: None (occurrence: None)
  Receive Date: 20070607
  Receipt Date: 20070528
  Transmission Date: 20071010
  Serious: Yes (Hospitalization)
  Sender: FDA-Public Use
  Company Number: PHBS2007ZA05208

PATIENT
  Age: 20 Year
  Sex: Male

DRUGS (4)
  1. SANDIMMUNE [Suspect]
     Indication: DERMATITIS ATOPIC
     Dosage: 400 MG/D
     Route: 048
  2. SANDIMMUNE [Suspect]
     Dosage: 100 MG/D
     Route: 048
  3. MEDROL [Concomitant]
     Dosage: UNK, BIW
  4. CORTISONE ACETATE [Concomitant]
     Route: 042

REACTIONS (5)
  - BRAIN OEDEMA [None]
  - HEADACHE [None]
  - HYPERTENSION [None]
  - LEUKOENCEPHALOMYELITIS [None]
  - VOMITING [None]
